FAERS Safety Report 22532574 (Version 2)
Quarter: 2023Q2

REPORT INFORMATION
  Report Type: Report from Study
  Country: PL (occurrence: PL)
  Receive Date: 20230607
  Receipt Date: 20230614
  Transmission Date: 20230721
  Serious: Yes (Hospitalization)
  Sender: FDA-Public Use
  Company Number: PL-002147023-NVSC2023PL090097

PATIENT
  Age: 57 Year
  Sex: Male
  Weight: 74 kg

DRUGS (11)
  1. INCLISIRAN [Suspect]
     Active Substance: INCLISIRAN
     Indication: Cardiovascular event prophylaxis
     Dosage: CODE NOT BROKEN
     Route: 058
     Dates: start: 20220722
  2. INVESTIGATIONAL PRODUCT [Suspect]
     Active Substance: INVESTIGATIONAL PRODUCT
     Indication: Cardiovascular event prophylaxis
     Dosage: CODE NOT BROKEN
     Route: 058
     Dates: start: 20220722
  3. PLACEBO [Suspect]
     Active Substance: UNSPECIFIED INGREDIENT
     Indication: Cardiovascular event prophylaxis
     Dosage: CODE NOT BROKEN
     Route: 058
     Dates: start: 20220722
  4. ASPIRIN [Concomitant]
     Active Substance: ASPIRIN
     Indication: Percutaneous coronary intervention
     Dosage: UNK
     Route: 065
     Dates: start: 2014
  5. ZOFENOPRIL [Concomitant]
     Active Substance: ZOFENOPRIL
     Indication: Hypertension
     Dosage: UNK
     Route: 065
     Dates: start: 20230203
  6. ALLOPURINOL [Concomitant]
     Active Substance: ALLOPURINOL
     Indication: Hyperuricaemia
     Dosage: UNK
     Route: 065
     Dates: start: 20230203
  7. ISOSORBIDI MONONITRAS [Concomitant]
     Indication: Cardiac failure
     Dosage: UNK
     Route: 065
     Dates: start: 20230329
  8. PRIMACOR [Concomitant]
     Active Substance: MILRINONE LACTATE
     Indication: Hypertension
     Dosage: UNK
     Route: 065
     Dates: start: 20230329
  9. PRIMACOR [Concomitant]
     Active Substance: MILRINONE LACTATE
     Indication: Myocardial infarction
  10. TORASEMIDUM [Concomitant]
     Indication: Hypertension
     Dosage: UNK
     Route: 065
     Dates: start: 20230329
  11. TORASEMIDUM [Concomitant]
     Indication: Myocardial infarction

REACTIONS (1)
  - Myocardial infarction [Recovered/Resolved with Sequelae]

NARRATIVE: CASE EVENT DATE: 20230203
